FAERS Safety Report 20179635 (Version 2)
Quarter: 2022Q1

REPORT INFORMATION
  Report Type: Report from Study
  Country: US (occurrence: US)
  Receive Date: 20211214
  Receipt Date: 20220110
  Transmission Date: 20220424
  Serious: Yes (Other)
  Sender: FDA-Public Use
  Company Number: US-BRISTOL-MYERS SQUIBB COMPANY-BMS-2021-134754

PATIENT
  Sex: Female

DRUGS (1)
  1. ABATACEPT [Suspect]
     Active Substance: ABATACEPT
     Indication: Product used for unknown indication
     Dosage: UNK
     Route: 065
     Dates: end: 20210112

REACTIONS (9)
  - Breast cancer [Unknown]
  - Rash [Unknown]
  - Erythema [Unknown]
  - Gingival erythema [Unknown]
  - Gingival disorder [Unknown]
  - Pain [Unknown]
  - Gait disturbance [Unknown]
  - Furuncle [Unknown]
  - Pain in extremity [Unknown]
